FAERS Safety Report 15300932 (Version 7)
Quarter: 2020Q3

REPORT INFORMATION
  Report Type: Report from Study
  Country: IL (occurrence: IL)
  Receive Date: 20180821
  Receipt Date: 20200728
  Transmission Date: 20201102
  Serious: Yes (Death, Hospitalization, Other)
  Sender: FDA-Public Use
  Company Number: PHHY2018IL075718

PATIENT
  Age: 15 Month
  Sex: Female
  Weight: 16.7 kg

DRUGS (10)
  1. TRAMETINIB [Suspect]
     Active Substance: TRAMETINIB
     Dosage: 0.25 MG, QD
     Route: 048
     Dates: start: 20180702
  2. LEVETIRACETAM. [Concomitant]
     Active Substance: LEVETIRACETAM
     Indication: SEIZURE
     Dosage: 400 MG, BID
     Route: 065
  3. OMEPRAZOLE. [Concomitant]
     Active Substance: OMEPRAZOLE
     Indication: GASTROINTESTINAL HAEMORRHAGE
     Dosage: 2 OT
     Route: 065
     Dates: start: 2019
  4. THYROXIN [Concomitant]
     Active Substance: LEVOTHYROXINE
     Indication: HYPOTHYROIDISM
     Dosage: 0.75 MG
     Route: 065
     Dates: start: 2019
  5. TRAMETINIB [Suspect]
     Active Substance: TRAMETINIB
     Indication: OPTIC GLIOMA
     Dosage: 0.5 MG
     Route: 065
  6. LEVETIRACETAM. [Concomitant]
     Active Substance: LEVETIRACETAM
     Dosage: 350 OT
     Route: 065
     Dates: start: 2018
  7. TRAMETINIB [Suspect]
     Active Substance: TRAMETINIB
     Dosage: 0.5 MG
     Route: 065
     Dates: start: 20191204
  8. KEPPRA [Concomitant]
     Active Substance: LEVETIRACETAM
     Indication: PRODUCT USED FOR UNKNOWN INDICATION
     Dosage: UNK
     Route: 065
     Dates: start: 20170517
  9. TRAMETINIB [Suspect]
     Active Substance: TRAMETINIB
     Dosage: 0.5 MG
     Route: 065
     Dates: start: 20180807
  10. TRAMETINIB [Suspect]
     Active Substance: TRAMETINIB
     Dosage: 0.25 MG, QD
     Route: 065
     Dates: start: 20181104

REACTIONS (18)
  - Blood creatine phosphokinase increased [Recovering/Resolving]
  - Shock [Fatal]
  - Asthenia [Unknown]
  - Device related sepsis [Recovered/Resolved]
  - Malignant neoplasm progression [Unknown]
  - Haematochezia [Unknown]
  - Leukopenia [Unknown]
  - Hepatic enzyme increased [Unknown]
  - General physical health deterioration [Unknown]
  - Sepsis [Fatal]
  - Somnolence [Unknown]
  - Dysentery [Unknown]
  - Tachypnoea [Recovering/Resolving]
  - Aeromonas test positive [Unknown]
  - Herpes oesophagitis [Recovering/Resolving]
  - Haematemesis [Unknown]
  - Gastrointestinal haemorrhage [Recovering/Resolving]
  - Optic glioma [Unknown]

NARRATIVE: CASE EVENT DATE: 20180821
